FAERS Safety Report 6657090-5 (Version None)
Quarter: 2010Q1

REPORT INFORMATION
  Report Type: 
  Country: None (occurrence: None)
  Receive Date: 20100330
  Receipt Date: 20100319
  Transmission Date: 20100710
  Serious: Yes (Other)
  Sender: FDA-Public Use
  Company Number: US-JNJFOC-20100111205

PATIENT
  Age: 73 Year
  Sex: Female

DRUGS (8)
  1. TYLENOL-500 [Suspect]
     Route: 048
  2. TYLENOL-500 [Suspect]
     Indication: DRUG USE FOR UNKNOWN INDICATION
     Route: 048
  3. TYLENOL-500 [Suspect]
  4. TYLENOL-500 [Suspect]
     Indication: PROCEDURAL PAIN
  5. TYLENOL SINUS CONGESTION + PAIN DAYTIME COOL BURST [Suspect]
     Indication: SINUS HEADACHE
     Route: 048
  6. CORGARD [Concomitant]
     Indication: HEART RATE INCREASED
  7. LEVOTHYROXINE SODIUM [Concomitant]
     Indication: HYPOTHYROIDISM
  8. LORAZEPAM [Concomitant]
     Indication: ANXIETY

REACTIONS (5)
  - ASTHENIA [None]
  - DIARRHOEA [None]
  - DIARRHOEA HAEMORRHAGIC [None]
  - GASTRIC DISORDER [None]
  - PRODUCT QUALITY ISSUE [None]
